FAERS Safety Report 5580346-4 (Version None)
Quarter: 2008Q1

REPORT INFORMATION
  Report Type: 
  Country: None (occurrence: None)
  Receive Date: 20080103
  Receipt Date: 20071226
  Transmission Date: 20080703
  Serious: Yes (Other)
  Sender: FDA-Public Use
  Company Number: JP-JNJFOC-20080100041

PATIENT
  Age: 30 Year
  Sex: Male

DRUGS (3)
  1. RISPERDAL [Suspect]
     Route: 048
  2. RISPERDAL [Suspect]
     Indication: SCHIZOPHRENIA
     Route: 048
  3. DIAZEPAM [Concomitant]
     Route: 048

REACTIONS (1)
  - BLOOD ALKALINE PHOSPHATASE INCREASED [None]
